FAERS Safety Report 10930904 (Version 1)
Quarter: 2015Q1

REPORT INFORMATION
  Report Type: Spontaneous
  Country: JP (occurrence: None)
  Receive Date: 20150317
  Receipt Date: 20150317
  Transmission Date: 20150721
  Serious: Yes (Other)
  Sender: FDA-Public Use
  Company Number: JP-20150035

PATIENT
  Age: 77 Year
  Sex: Male

DRUGS (3)
  1. GELATIN [Concomitant]
     Active Substance: GELATIN
  2. FARMORUBICIN (EPIRUBICIN HYDROCHLORIDE) [Concomitant]
  3. 480, 10 ML LIPIODOL ULTRA FLUIDE (ETHIODIZED OIL) [Suspect]
     Active Substance: ETHIODIZED OIL
     Indication: THERAPEUTIC EMBOLISATION
     Route: 013

REACTIONS (3)
  - Product use issue [None]
  - Tumour lysis syndrome [None]
  - Metabolic acidosis [None]
